FAERS Safety Report 16820154 (Version 2)
Quarter: 2022Q3

REPORT INFORMATION
  Report Type: Spontaneous
  Country: US (occurrence: US)
  Receive Date: 20190918
  Receipt Date: 20220810
  Transmission Date: 20221027
  Serious: Yes (Other)
  Sender: FDA-Public Use
  Company Number: US-CIPLA LTD.-2019US06339

PATIENT
  Age: 65 Year
  Sex: Female

DRUGS (8)
  1. TOPIRAMATE [Suspect]
     Active Substance: TOPIRAMATE
     Indication: Back pain
     Dosage: 25 MILLIGRAM, QD (EVENING) (0 MONTH), IMMEDIATE RELEASE FORMULATION)
     Route: 065
  2. TOPIRAMATE [Suspect]
     Active Substance: TOPIRAMATE
     Dosage: 50 MG, DOSE INCREASED ON 3RD MONTH
     Route: 065
  3. TOPIRAMATE [Suspect]
     Active Substance: TOPIRAMATE
     Dosage: 25 MG, DOSE REDUCED FROM 50 MG TO 25 MG IN 17TH MONTH ON DAY 1, NIGHT
     Route: 065
  4. TOPIRAMATE [Suspect]
     Active Substance: TOPIRAMATE
     Dosage: 50 MILLIGRAM, QD (NIGHT), IN 17TH MONTH ON DAY 2
     Route: 065
  5. TOPIRAMATE [Suspect]
     Active Substance: TOPIRAMATE
     Dosage: 50 MILLIGRAM, QD (NIGHT), IN 17TH MONTH ON DAY 3
     Route: 065
  6. TOPIRAMATE [Suspect]
     Active Substance: TOPIRAMATE
     Dosage: 25 MILLIGRAM, QD (NIGHT), DOSE REDUCED FROM 50 TO 25 MG IN 17TH MONTH ON DAY 4
     Route: 065
  7. TOPIRAMATE [Suspect]
     Active Substance: TOPIRAMATE
     Dosage: 50 MILLIGRAM, QD (NIGHT), IN 17TH MONTH ON DAY 5
     Route: 065
  8. TOPIRAMATE [Suspect]
     Active Substance: TOPIRAMATE
     Dosage: 50 MILLIGRAM, QD (NIGHT), IN 17TH MONTH ON DAY 6
     Route: 065

REACTIONS (4)
  - Withdrawal syndrome [Recovered/Resolved]
  - Drug dependence [Unknown]
  - Myalgia [Unknown]
  - Tremor [Unknown]
